FAERS Safety Report 12778458 (Version 1)
Quarter: 2016Q3

REPORT INFORMATION
  Report Type: Report from Study
  Country: IN (occurrence: IN)
  Receive Date: 20160926
  Receipt Date: 20160926
  Transmission Date: 20161109
  Serious: Yes (Death)
  Sender: FDA-Public Use
  Company Number: IN-ROCHE-1834211

PATIENT
  Age: 18 Year
  Sex: Male

DRUGS (8)
  1. ACTEMRA [Suspect]
     Active Substance: TOCILIZUMAB
     Indication: JUVENILE IDIOPATHIC ARTHRITIS
     Route: 042
     Dates: start: 201401, end: 201406
  2. LEVAMISOLE [Concomitant]
     Active Substance: LEVAMISOLE
     Route: 065
     Dates: start: 20140204
  3. FOLIC ACID. [Suspect]
     Active Substance: FOLIC ACID
     Indication: PRODUCT USED FOR UNKNOWN INDICATION
     Route: 065
     Dates: start: 20140104
  4. FAMOTIDINE. [Suspect]
     Active Substance: FAMOTIDINE
     Indication: PRODUCT USED FOR UNKNOWN INDICATION
     Route: 065
     Dates: start: 20140104
  5. ALBENDAZOLE [Concomitant]
     Active Substance: ALBENDAZOLE
     Route: 065
     Dates: start: 20140204
  6. METHOTREXATE. [Concomitant]
     Active Substance: METHOTREXATE
     Route: 065
     Dates: start: 20140104
  7. MEDROL [Concomitant]
     Active Substance: METHYLPREDNISOLONE
     Route: 065
     Dates: start: 20140204
  8. OMNACORTIL [Concomitant]
     Active Substance: PREDNISOLONE
     Route: 065
     Dates: start: 20140104

REACTIONS (2)
  - Renal failure [Fatal]
  - Haemoglobin decreased [Unknown]

NARRATIVE: CASE EVENT DATE: 201402
